FAERS Safety Report 4298909-5 (Version None)
Quarter: 2004Q1

REPORT INFORMATION
  Report Type: 
  Country: None (occurrence: None)
  Receive Date: 20040126
  Receipt Date: 20030923
  Transmission Date: 20041129
  Serious: No
  Sender: FDA-Public Use
  Company Number: USA030948052

PATIENT
  Sex: Male

DRUGS (3)
  1. STRATTERA [Suspect]
     Dates: start: 20030301
  2. TEGRETOL [Concomitant]
  3. CARBAMAZEPINE [Concomitant]

REACTIONS (3)
  - ANTICONVULSANT TOXICITY [None]
  - DRUG INTERACTION [None]
  - SOMNOLENCE [None]
